FAERS Safety Report 10336420 (Version 1)
Quarter: 2014Q3

REPORT INFORMATION
  Report Type: Spontaneous
  Country: US (occurrence: US)
  Receive Date: 20140723
  Receipt Date: 20140723
  Transmission Date: 20150326
  Serious: Yes (Other)
  Sender: FDA-Public Use
  Company Number: US-BAYER-2014-108100

PATIENT
  Age: 44 Year
  Sex: Female

DRUGS (1)
  1. BETASERON [Suspect]
     Active Substance: INTERFERON BETA-1B
     Indication: MULTIPLE SCLEROSIS
     Dosage: 0.25 MG, QOD
     Route: 058
     Dates: start: 2003

REACTIONS (5)
  - Anxiety [Not Recovered/Not Resolved]
  - Multiple sclerosis relapse [None]
  - Stress [Not Recovered/Not Resolved]
  - Chest pain [None]
  - Headache [None]

NARRATIVE: CASE EVENT DATE: 201405
